FAERS Safety Report 12968669 (Version 1)
Quarter: 2016Q4

REPORT INFORMATION
  Report Type: Spontaneous
  Country: US (occurrence: US)
  Receive Date: 20161121
  Receipt Date: 20161121
  Transmission Date: 20170207
  Serious: No
  Sender: FDA-Public Use
  Company Number: None

PATIENT
  Age: 16 Year
  Sex: Female
  Weight: 129 kg

DRUGS (1)
  1. STIMATE [Suspect]
     Active Substance: DESMOPRESSIN ACETATE
     Indication: HAEMOPHILIA
     Dosage: 1 SPRAY BID FOR 2 DAYS AFTER NOSEBL
     Route: 045

REACTIONS (1)
  - Flushing [None]

NARRATIVE: CASE EVENT DATE: 20161021
